FAERS Safety Report 6220053-8 (Version None)
Quarter: 2009Q2

REPORT INFORMATION
  Report Type: 
  Country: None (occurrence: None)
  Receive Date: 20090609
  Receipt Date: 20090529
  Transmission Date: 20091009
  Serious: Yes (Other)
  Sender: FDA-Public Use
  Company Number: PHEH2009US04063

PATIENT
  Sex: Female
  Weight: 80 kg

DRUGS (7)
  1. CLOZARIL [Suspect]
     Indication: SCHIZOPHRENIA
     Dosage: 250 MG, QHS
     Route: 048
     Dates: end: 20090126
  2. CLOZARIL [Suspect]
     Indication: PSYCHOTIC DISORDER
  3. DIAMOX                                  /CAN/ [Concomitant]
     Indication: BENIGN INTRACRANIAL HYPERTENSION
     Dosage: 250 MG, QID
  4. INVEGA [Concomitant]
     Indication: SCHIZOAFFECTIVE DISORDER
     Dosage: 6 MG, QHS
     Dates: start: 20070307, end: 20080313
  5. MULTI-VITAMINS [Concomitant]
     Indication: SUPPLEMENTATION THERAPY
     Dosage: 1 TABLET DAILY
  6. SEROQUEL [Concomitant]
     Indication: SCHIZOAFFECTIVE DISORDER
     Dosage: 400 MG QHS, PLUS 100 MG QID, PRN
     Dates: start: 20080126, end: 20081021
  7. ZYPREXA [Concomitant]
     Indication: SCHIZOAFFECTIVE DISORDER
     Dosage: UNK, UNK
     Dates: start: 20071105, end: 20080823

REACTIONS (10)
  - AFFECTIVE DISORDER [None]
  - COLITIS MICROSCOPIC [None]
  - CONSTIPATION [None]
  - DRUG EXPOSURE DURING PREGNANCY [None]
  - HYPERPROLACTINAEMIA [None]
  - INSOMNIA [None]
  - LEUKOPENIA [None]
  - NAUSEA [None]
  - NEUTROPHIL COUNT DECREASED [None]
  - PSYCHOTIC DISORDER [None]
